FAERS Safety Report 13705084 (Version 1)
Quarter: 2017Q2

REPORT INFORMATION
  Report Type: Spontaneous
  Country: FR (occurrence: FR)
  Receive Date: 20170630
  Receipt Date: 20170630
  Transmission Date: 20170830
  Serious: Yes (Hospitalization)
  Sender: FDA-Public Use
  Company Number: FR-CONCORDIA PHARMACEUTICALS INC.-GSH201706-003840

PATIENT
  Age: 84 Year
  Sex: Male

DRUGS (12)
  1. STAGID [Concomitant]
     Active Substance: METFORMIN PAMOATE
  2. SEVIKAR [Concomitant]
     Active Substance: AMLODIPINE BESYLATE\OLMESARTAN MEDOXOMIL
  3. VITAMIN B12 [Concomitant]
     Active Substance: CYANOCOBALAMIN
  4. NATISPRAY [Concomitant]
     Active Substance: NITROGLYCERIN
  5. PULMICORT TURBUHALER [Concomitant]
     Active Substance: BUDESONIDE
  6. ALPRESS [Concomitant]
     Active Substance: PRAZOSIN
  7. PLAQUENIL [Suspect]
     Active Substance: HYDROXYCHLOROQUINE SULFATE
     Indication: CUTANEOUS SARCOIDOSIS
     Route: 048
     Dates: start: 20170427, end: 20170502
  8. VENTOLINE [Concomitant]
     Active Substance: ALBUTEROL
  9. DOLIPRANE [Concomitant]
     Active Substance: ACETAMINOPHEN
  10. PANTOPRAZOLE [Concomitant]
     Active Substance: PANTOPRAZOLE
  11. CORDARONE [Concomitant]
     Active Substance: AMIODARONE HYDROCHLORIDE
  12. ALDACTAZINE [Concomitant]
     Active Substance: ALTHIAZIDE\SPIRONOLACTONE

REACTIONS (1)
  - Erythema [Not Recovered/Not Resolved]

NARRATIVE: CASE EVENT DATE: 20170427
